FAERS Safety Report 4912989-2 (Version None)
Quarter: 2006Q1

REPORT INFORMATION
  Report Type: 
  Country: None (occurrence: None)
  Receive Date: 20060210
  Receipt Date: 20060201
  Transmission Date: 20060701
  Serious: Yes (Disabling)
  Sender: FDA-Public Use
  Company Number: 2006020008

PATIENT
  Age: 51 Year
  Sex: Female

DRUGS (2)
  1. ASTELIN NASAL SPRAY (AZELASTINE HYDROCHLORIDE) [Suspect]
     Indication: SINUSITIS
     Dosage: 2 SPRAYS BID, IN
     Dates: start: 20060101
  2. KETEX (TELITHROMYCIN) [Suspect]
     Indication: SINUSITIS
     Dosage: 2 TABLETS DAILY X5 DAYS
     Dates: start: 20060101, end: 20060101

REACTIONS (3)
  - DIZZINESS [None]
  - FACIAL PALSY [None]
  - VIRAL INFECTION [None]
